FAERS Safety Report 10043883 (Version 1)
Quarter: 2014Q1

REPORT INFORMATION
  Report Type: Spontaneous
  Country: US (occurrence: None)
  Receive Date: 20140327
  Receipt Date: 20140327
  Transmission Date: 20141002
  Serious: Yes (Hospitalization)
  Sender: FDA-Public Use
  Company Number: None

PATIENT
  Age: 61 Year
  Sex: Male
  Weight: 127 kg

DRUGS (6)
  1. VANCOMYCIN HCL [Suspect]
     Indication: LOCALISED INFECTION
     Route: 042
     Dates: start: 20140217, end: 20140224
  2. VANCOMYCIN HCL [Suspect]
     Indication: CELLULITIS
     Route: 042
     Dates: start: 20140217, end: 20140224
  3. CIPRO [Suspect]
     Indication: LOCALISED INFECTION
     Route: 048
     Dates: start: 20140217, end: 20140224
  4. CIPRO [Suspect]
     Indication: CELLULITIS
     Route: 048
     Dates: start: 20140217, end: 20140224
  5. LISINOPRIL [Concomitant]
  6. FUROSEMIDE [Concomitant]

REACTIONS (7)
  - Renal failure acute [None]
  - Diarrhoea [None]
  - Hypophagia [None]
  - Nephropathy toxic [None]
  - Renal tubular necrosis [None]
  - Venous thrombosis [None]
  - Medical device complication [None]
